FAERS Safety Report 14655398 (Version 7)
Quarter: 2019Q2

REPORT INFORMATION
  Report Type: Report from Study
  Country: US (occurrence: US)
  Receive Date: 20180319
  Receipt Date: 20190628
  Transmission Date: 20190711
  Serious: Yes (Hospitalization, Other)
  Sender: FDA-Public Use
  Company Number: US-CELGENEUS-USA-20180304086

PATIENT
  Age: 82 Year
  Sex: Male
  Weight: 100 kg

DRUGS (4)
  1. REVLIMID [Suspect]
     Active Substance: LENALIDOMIDE
     Dosage: 5 MILLIGRAM
     Route: 048
     Dates: start: 20170808, end: 20180203
  2. REVLIMID [Suspect]
     Active Substance: LENALIDOMIDE
     Dosage: 5 MILLIGRAM
     Route: 048
     Dates: start: 20180727, end: 20180731
  3. REVLIMID [Suspect]
     Active Substance: LENALIDOMIDE
     Dosage: 5 MILLIGRAM
     Route: 048
     Dates: start: 20180219, end: 20180305
  4. REVLIMID [Suspect]
     Active Substance: LENALIDOMIDE
     Indication: MYELODYSPLASTIC SYNDROME
     Dosage: 10 MILLIGRAM
     Route: 048
     Dates: start: 20170626, end: 20170718

REACTIONS (24)
  - Splenic infarction [Not Recovered/Not Resolved]
  - Thrombocytopenia [Recovered/Resolved]
  - Musculoskeletal chest pain [Recovered/Resolved]
  - Pyrexia [Recovered/Resolved]
  - White blood cell count decreased [Recovered/Resolved]
  - Anaemia [Recovered/Resolved]
  - Pleuritic pain [Recovered/Resolved]
  - Anaemia [Not Recovered/Not Resolved]
  - Abscess [Not Recovered/Not Resolved]
  - Neutrophil count decreased [Not Recovered/Not Resolved]
  - Neutrophil count decreased [Recovered/Resolved]
  - Tenosynovitis [Recovered/Resolved]
  - Pyrexia [Recovered/Resolved]
  - Dyspnoea [Not Recovered/Not Resolved]
  - Anaemia [Recovered/Resolved]
  - Thrombocytopenia [Recovered/Resolved]
  - Rash [Recovered/Resolved]
  - Pneumonia [Recovered/Resolved]
  - Tenosynovitis [Recovered/Resolved]
  - Anaemia [Recovered/Resolved]
  - Dyspnoea [Recovered/Resolved]
  - Myelodysplastic syndrome [Not Recovered/Not Resolved]
  - Thrombocytopenia [Recovered/Resolved]
  - Platelet count decreased [Not Recovered/Not Resolved]

NARRATIVE: CASE EVENT DATE: 20170719
